FAERS Safety Report 9163618 (Version 2)
Quarter: 2013Q1

REPORT INFORMATION
  Report Type: Report from Study
  Country: US (occurrence: US)
  Receive Date: 20130314
  Receipt Date: 20130315
  Transmission Date: 20140127
  Serious: Yes (Hospitalization)
  Sender: FDA-Public Use
  Company Number: US-ROCHE-1191427

PATIENT
  Age: 47 Year
  Sex: Female
  Weight: 42.68 kg

DRUGS (1)
  1. XOLAIR [Suspect]
     Indication: ASTHMA
     Route: 058
     Dates: start: 20130110

REACTIONS (2)
  - Pharyngeal oedema [Unknown]
  - Throat tightness [Recovered/Resolved]
